FAERS Safety Report 12784812 (Version 1)
Quarter: 2016Q3

REPORT INFORMATION
  Report Type: Spontaneous
  Country: AU (occurrence: AU)
  Receive Date: 20160927
  Receipt Date: 20160927
  Transmission Date: 20161109
  Serious: Yes (Death, Hospitalization)
  Sender: FDA-Public Use
  Company Number: AU-INGENUS PHARMACEUTICALS, LLC-ING201609-000048

PATIENT
  Age: 67 Year
  Sex: Female

DRUGS (1)
  1. PROBENECID AND COLCHICINE [Suspect]
     Active Substance: COLCHICINE\PROBENECID
     Indication: GOUT

REACTIONS (11)
  - Pancytopenia [Unknown]
  - Spur cell anaemia [Unknown]
  - Cardiogenic shock [Unknown]
  - Vomiting [Unknown]
  - Diarrhoea [Unknown]
  - Liver function test increased [Unknown]
  - Shock [Fatal]
  - Abdominal pain [Unknown]
  - Toxicity to various agents [Fatal]
  - Multiple organ dysfunction syndrome [Fatal]
  - Acute kidney injury [Unknown]
